FAERS Safety Report 11264655 (Version 4)
Quarter: 2015Q3

REPORT INFORMATION
  Report Type: Spontaneous
  Country: US (occurrence: US)
  Receive Date: 20150713
  Receipt Date: 20150916
  Transmission Date: 20151125
  Serious: Yes (Other)
  Sender: FDA-Public Use
  Company Number: US-PFIZER INC-2015225728

PATIENT
  Age: 60 Year
  Sex: Female
  Weight: 82 kg

DRUGS (3)
  1. IBRANCE [Suspect]
     Active Substance: PALBOCICLIB
     Indication: BREAST CANCER STAGE IV
     Dosage: 25 MG, CYCLIC (FOR 21 DAYS AND THEN OFF 7 DAYS CYCLES)
     Route: 048
     Dates: start: 20150608
  2. IBRANCE [Suspect]
     Active Substance: PALBOCICLIB
     Dosage: UNK
     Route: 048
     Dates: end: 2015
  3. LETROZOLE. [Concomitant]
     Active Substance: LETROZOLE
     Indication: ANTIOESTROGEN THERAPY
     Dosage: 2.5 MG, DAILY
     Route: 048
     Dates: start: 20150608

REACTIONS (7)
  - Tooth disorder [Unknown]
  - Dyspnoea exertional [Unknown]
  - Insomnia [Unknown]
  - Neutropenia [Recovering/Resolving]
  - Memory impairment [Not Recovered/Not Resolved]
  - Gingival disorder [Unknown]
  - Hot flush [Unknown]

NARRATIVE: CASE EVENT DATE: 2015
